FAERS Safety Report 9029475 (Version 3)
Quarter: 2013Q1

REPORT INFORMATION
  Report Type: Spontaneous
  Country: KR (occurrence: KR)
  Receive Date: 20130125
  Receipt Date: 20130215
  Transmission Date: 20140127
  Serious: Yes (Hospitalization, Other)
  Sender: FDA-Public Use
  Company Number: KR-ELI_LILLY_AND_COMPANY-KR201301006092

PATIENT
  Age: 67 Year
  Sex: Male

DRUGS (1)
  1. HUMALOG 50% LISPRO, 50% NPL [Suspect]
     Indication: TYPE 2 DIABETES MELLITUS
     Dosage: 10 U, BID
     Route: 058
     Dates: start: 20121231

REACTIONS (3)
  - Pneumonia [Recovered/Resolved]
  - Cerebral infarction [Not Recovered/Not Resolved]
  - Dyspnoea [Unknown]
